FAERS Safety Report 23369605 (Version 1)
Quarter: 2024Q1

REPORT INFORMATION
  Report Type: Spontaneous
  Country: None (occurrence: SK)
  Receive Date: 20240105
  Receipt Date: 20240105
  Transmission Date: 20240409
  Serious: Yes (Other)
  Sender: FDA-Public Use
  Company Number: SK-Harrow Eye-2150178

PATIENT
  Age: 51 Year
  Sex: Female

DRUGS (5)
  1. MAXIDEX [Suspect]
     Active Substance: DEXAMETHASONE
     Indication: Product used for unknown indication
  2. BORTEZOMIB [Suspect]
     Active Substance: BORTEZOMIB
  3. CYCLOPHOSPHAMIDE [Suspect]
     Active Substance: CYCLOPHOSPHAMIDE
  4. NAVELBINE [Suspect]
     Active Substance: VINORELBINE TARTRATE
  5. MELPHALAN [Suspect]
     Active Substance: MELPHALAN
     Dates: start: 20220214

REACTIONS (7)
  - Febrile neutropenia [Unknown]
  - Condition aggravated [Unknown]
  - Cytomegalovirus infection reactivation [Unknown]
  - Thrombocytopenia [Unknown]
  - Enterocolitis haemorrhagic [Unknown]
  - Liver disorder [Unknown]
  - Escherichia bacteraemia [Unknown]
